FAERS Safety Report 9232144 (Version 3)
Quarter: 2013Q2

REPORT INFORMATION
  Report Type: Report from Study
  Country: US (occurrence: US)
  Receive Date: 20130415
  Receipt Date: 20130426
  Transmission Date: 20140414
  Serious: Yes (Hospitalization)
  Sender: FDA-Public Use
  Company Number: US-GILEAD-2013-0073351

PATIENT
  Age: 58 Year
  Sex: Female

DRUGS (5)
  1. ELVITEGRAVIR/EMTRICITABINE/TENOFOVIR DF/COBICISTAT [Suspect]
     Indication: HIV INFECTION
     Dosage: UNK, QD
     Route: 048
     Dates: start: 20121128
  2. LISINOPRIL [Concomitant]
     Dosage: UNK
     Dates: start: 200604
  3. DILANTIN                           /00017401/ [Concomitant]
     Dosage: UNK
     Dates: start: 199201
  4. FERROUS SULFATE [Concomitant]
     Dosage: UNK
     Dates: start: 200705
  5. CLONIDINE [Concomitant]
     Dosage: UNK
     Dates: start: 20121128

REACTIONS (1)
  - Chest pain [Recovered/Resolved]
